FAERS Safety Report 5718728-X (Version None)
Quarter: 2008Q2

REPORT INFORMATION
  Report Type: 
  Country: None (occurrence: None)
  Receive Date: 20080423
  Receipt Date: 20080410
  Transmission Date: 20081010
  Serious: Yes (Hospitalization, Disabling)
  Sender: FDA-Public Use
  Company Number: 2008VX000205

PATIENT
  Age: 77 Year
  Sex: Female

DRUGS (5)
  1. PERMAX [Suspect]
     Indication: PARKINSON'S DISEASE
     Dosage: 1500 UG; QD; PO
     Route: 048
     Dates: start: 20071014
  2. SELEGILINE HCL [Concomitant]
  3. CERCINE [Concomitant]
  4. THYRADIN S [Concomitant]
  5. PRAMIPEXOLE DIHYDROCHLORIDE [Concomitant]

REACTIONS (7)
  - AORTIC VALVE DISEASE [None]
  - CARDIAC NEOPLASM UNSPECIFIED [None]
  - INFLAMMATION [None]
  - LIVER DISORDER [None]
  - OSTEONECROSIS [None]
  - PERICARDIAL EFFUSION [None]
  - TRICUSPID VALVE INCOMPETENCE [None]
